FAERS Safety Report 10229385 (Version 1)
Quarter: 2014Q2

REPORT INFORMATION
  Report Type: Spontaneous
  Country: US (occurrence: FR)
  Receive Date: 20140611
  Receipt Date: 20140611
  Transmission Date: 20141212
  Serious: Yes (Hospitalization)
  Sender: FDA-Public Use
  Company Number: 2014SP003169

PATIENT
  Age: 75 Year
  Sex: Female

DRUGS (5)
  1. FLUOROURACIL [Suspect]
     Indication: PRODUCT USED FOR UNKNOWN INDICATION
     Route: 041
     Dates: start: 20140225, end: 20140303
  2. GEMCITABINE HYDROCHLORIDE [Concomitant]
     Route: 042
     Dates: start: 20140225, end: 20140225
  3. LATANOPROST [Concomitant]
     Route: 047
  4. PAROXETINE HYDROCHLORIDE [Concomitant]
     Route: 048
  5. ARIPIPRAZOLE [Concomitant]
     Route: 048

REACTIONS (3)
  - Malaise [Recovered/Resolved]
  - Sinus tachycardia [Recovered/Resolved]
  - Hypotension [Unknown]
